FAERS Safety Report 5859975-6 (Version None)
Quarter: 2008Q3

REPORT INFORMATION
  Report Type: 
  Country: None (occurrence: None)
  Receive Date: 20080827
  Receipt Date: 20080819
  Transmission Date: 20090109
  Serious: Yes (Other)
  Sender: FDA-Public Use
  Company Number: US-ELI_LILLY_AND_COMPANY-US200808003592

PATIENT
  Sex: Female

DRUGS (3)
  1. HUMULIN 70/30 [Suspect]
     Dates: start: 20070101
  2. HUMULIN 70/30 [Suspect]
     Dates: start: 20070101
  3. NOVOLIN 70/30 [Concomitant]

REACTIONS (3)
  - BLINDNESS UNILATERAL [None]
  - DIZZINESS [None]
  - VISUAL ACUITY REDUCED [None]
